FAERS Safety Report 21864710 (Version 1)
Quarter: 2023Q1

REPORT INFORMATION
  Report Type: Spontaneous
  Country: US (occurrence: US)
  Receive Date: 20230116
  Receipt Date: 20230116
  Transmission Date: 20230418
  Serious: No
  Sender: FDA-Public Use
  Company Number: US-drreddys-SPO/USA/22/0159339

PATIENT
  Age: 53 Year

DRUGS (1)
  1. ZENATANE [Suspect]
     Active Substance: ISOTRETINOIN
     Indication: Acne
     Dosage: RMA ISSUE DATE: 14 JULY 2022, 02:48:58 PM, 25 AUGUST 2022, 03:29:55 PM, 21 SEPTEMBER 2022, 02:45:38

REACTIONS (2)
  - Drug ineffective [Unknown]
  - Product quality issue [Unknown]
